FAERS Safety Report 8611365 (Version 3)
Quarter: 2013Q1

REPORT INFORMATION
  Report Type: Report from Study
  Country: CA (occurrence: CA)
  Receive Date: 20120613
  Receipt Date: 20130128
  Transmission Date: 20140127
  Serious: Yes (Hospitalization, Other)
  Sender: FDA-Public Use
  Company Number: CA-BRISTOL-MYERS SQUIBB COMPANY-16660318

PATIENT
  Age: 37 Year
  Sex: Female

DRUGS (12)
  1. ORENCIA [Suspect]
     Indication: RHEUMATOID ARTHRITIS
     Dosage: LAST INF ON:3MAY12,OVERDOSE EARLY 2012?NO OF INF:30
     Route: 042
     Dates: start: 20091119
  2. LITHIUM [Suspect]
  3. METHOTREXATE [Suspect]
  4. FOLIC ACID [Concomitant]
  5. NORVASC [Concomitant]
  6. PLAQUENIL [Concomitant]
  7. SEROQUEL [Concomitant]
  8. AMITRIPTYLINE [Concomitant]
  9. VITAMIN B12 [Concomitant]
  10. SYNTHROID [Concomitant]
  11. NOVO-GESIC FORTE [Concomitant]
  12. PROZAC [Concomitant]

REACTIONS (3)
  - Toxicity to various agents [Unknown]
  - Renal failure acute [Not Recovered/Not Resolved]
  - Renal failure chronic [Not Recovered/Not Resolved]
